FAERS Safety Report 7779924-3 (Version None)
Quarter: 2011Q3

REPORT INFORMATION
  Report Type: 
  Country: None (occurrence: None)
  Receive Date: 20110927
  Receipt Date: 20110921
  Transmission Date: 20111222
  Serious: Yes (Death, Other)
  Sender: FDA-Public Use
  Company Number: JP-ASTELLAS-2010JP007631

PATIENT
  Sex: Female
  Weight: 41 kg

DRUGS (15)
  1. PROGRAF [Suspect]
     Indication: STILL'S DISEASE ADULT ONSET
     Dosage: 3 MG, UID/QD
     Route: 048
     Dates: start: 20090428, end: 20100610
  2. PREDNISOLONE [Suspect]
     Dosage: 10 MG, UID/QD
     Route: 048
     Dates: start: 20100416, end: 20100613
  3. ITRACONAZOLE [Concomitant]
     Indication: ASPERGILLOSIS
     Dosage: UNK
     Route: 048
     Dates: start: 20100217, end: 20100610
  4. PREDNISOLONE [Suspect]
     Dosage: 12.5 MG, UID/QD
     Route: 048
     Dates: start: 20100111, end: 20100121
  5. TERBINAFINE HCL [Concomitant]
     Indication: ASPERGILLOSIS
     Dosage: 1 DF, UID/QD
     Route: 062
     Dates: start: 20100209, end: 20100216
  6. PREDNISOLONE [Suspect]
     Dosage: 17 MG, UID/QD
     Route: 048
     Dates: start: 20100122, end: 20100218
  7. PREDNISOLONE [Suspect]
     Dosage: 11 MG, UID/QD
     Route: 048
     Dates: start: 20100319, end: 20100330
  8. PREDNISOLONE [Suspect]
     Dosage: 18 MG, UID/QD
     Route: 048
     Dates: start: 20100219, end: 20100318
  9. RISEDRONATE SODIUM [Concomitant]
     Indication: OSTEOPOROSIS
     Dosage: 2.5 MG, UID/QD
     Route: 048
     Dates: start: 20090428, end: 20100610
  10. PREDNISOLONE [Suspect]
     Indication: STILL'S DISEASE ADULT ONSET
     Dosage: 40 MG, UNKNOWN/D
     Route: 048
  11. PREDNISOLONE [Suspect]
     Dosage: 11 MG, UID/QD
     Route: 048
     Dates: start: 20100407, end: 20100415
  12. METHOTREXATE [Concomitant]
     Indication: STILL'S DISEASE ADULT ONSET
     Dosage: 4 MG, WEEKLY
     Route: 065
  13. PREDNISOLONE [Suspect]
     Dosage: 12 MG, UID/QD
     Route: 048
     Dates: start: 20100331, end: 20100406
  14. PROCYLIN [Concomitant]
     Indication: ARTERIAL OCCLUSIVE DISEASE
     Dosage: 20 UG, UID/QD
     Route: 048
     Dates: start: 20090428, end: 20100610
  15. OMEPRAZOLE [Concomitant]
     Indication: GASTRIC ULCER
     Dosage: 20 MG, UID/QD
     Route: 048
     Dates: start: 20090428, end: 20100610

REACTIONS (6)
  - FUNGAL SKIN INFECTION [None]
  - OFF LABEL USE [None]
  - PNEUMOCYSTIS JIROVECI PNEUMONIA [None]
  - CYTOMEGALOVIRUS INFECTION [None]
  - STOMATITIS [None]
  - INTERSTITIAL LUNG DISEASE [None]
